FAERS Safety Report 13277894 (Version 4)
Quarter: 2017Q4

REPORT INFORMATION
  Report Type: Spontaneous
  Country: JP (occurrence: JP)
  Receive Date: 20170228
  Receipt Date: 20171206
  Transmission Date: 20180320
  Serious: Yes (Hospitalization)
  Sender: FDA-Public Use
  Company Number: JP-ELI_LILLY_AND_COMPANY-JP201701004965

PATIENT
  Age: 72 Year
  Sex: Female
  Weight: 41.5 kg

DRUGS (11)
  1. LEVOFOLINATE CALCIUM [Suspect]
     Active Substance: LEVOLEUCOVORIN CALCIUM
     Indication: RECTAL CANCER RECURRENT
     Dosage: 250 MG, UNK
     Route: 042
     Dates: start: 20161220, end: 20161220
  2. MAGNESIUM OXIDE. [Concomitant]
     Active Substance: MAGNESIUM OXIDE
     Dosage: UNK
     Dates: start: 20161220, end: 20161223
  3. AMLODIPINE [Concomitant]
     Active Substance: AMLODIPINE BESYLATE
  4. KAMISHOYOSAN                       /09370001/ [Concomitant]
  5. IRINOTECAN [Suspect]
     Active Substance: IRINOTECAN
     Indication: RECTAL CANCER RECURRENT
     Dosage: 500 MG, UNK
     Route: 042
     Dates: start: 20161220, end: 20161220
  6. SODIUM BICARBONATE. [Concomitant]
     Active Substance: SODIUM BICARBONATE
     Dosage: UNK
     Dates: start: 20161220, end: 20161223
  7. FLUOROURACIL. [Suspect]
     Active Substance: FLUOROURACIL
     Indication: RECTAL CANCER RECURRENT
     Dosage: 180 MG, UNK
     Route: 042
     Dates: start: 20161220, end: 20161220
  8. PRAMIEL                            /00041901/ [Concomitant]
     Dosage: UNK
     Dates: start: 20161220, end: 20161223
  9. CYRAMZA [Suspect]
     Active Substance: RAMUCIRUMAB
     Indication: RECTAL CANCER RECURRENT
     Dosage: 300 MG, UNK
     Route: 042
     Dates: start: 20161220, end: 20161220
  10. URSODEOXYCHOLIC ACID [Concomitant]
     Active Substance: URSODIOL
     Dosage: UNK
     Dates: start: 20161220, end: 20161223
  11. LOPEMIN                            /00384302/ [Concomitant]
     Active Substance: LOPERAMIDE HYDROCHLORIDE

REACTIONS (6)
  - Decreased appetite [Unknown]
  - Somnolence [Unknown]
  - Thrombotic microangiopathy [Recovered/Resolved]
  - Malaise [Unknown]
  - Nephrotic syndrome [Recovered/Resolved]
  - Asthenia [Unknown]

NARRATIVE: CASE EVENT DATE: 20170105
